FAERS Safety Report 22974513 (Version 2)
Quarter: 2023Q4

REPORT INFORMATION
  Report Type: Spontaneous
  Country: US (occurrence: US)
  Receive Date: 20230923
  Receipt Date: 20231007
  Transmission Date: 20240110
  Serious: No
  Sender: FDA-Public Use
  Company Number: US-JNJFOC-20230916966

PATIENT
  Age: 45 Year
  Sex: Female

DRUGS (1)
  1. MENS ROGAINE EXTRA STRENGTH [Suspect]
     Active Substance: MINOXIDIL
     Indication: Alopecia
     Dosage: UP TO LINE ON DROPPER
     Route: 061
     Dates: start: 20230709

REACTIONS (5)
  - Dandruff [Not Recovered/Not Resolved]
  - Application site rash [Not Recovered/Not Resolved]
  - Rash [Unknown]
  - Product use issue [Unknown]
  - Intentional product misuse [Unknown]

NARRATIVE: CASE EVENT DATE: 20230709
